FAERS Safety Report 7141661-6 (Version None)
Quarter: 2010Q4

REPORT INFORMATION
  Report Type: 
  Country: None (occurrence: None)
  Receive Date: 20101124
  Receipt Date: 20101110
  Transmission Date: 20110411
  Serious: Yes (Hospitalization)
  Sender: FDA-Public Use
  Company Number: DSA_44303_2010

PATIENT
  Age: 44 Year
  Sex: Male
  Weight: 63.9572 kg

DRUGS (4)
  1. ENALAPRIL MALEATE [Suspect]
     Indication: HYPERTENSION
     Dosage: (10 MG QD), (20 MG QD), (DF)
  2. ENALAPRIL MALEATE [Suspect]
     Indication: HYPERTENSION
     Dosage: (10 MG QD), (20 MG QD), (DF)
  3. GLUCOCORTICOIDS (CORTICOIDS) 40 MG [Suspect]
     Indication: SYSTEMIC LUPUS ERYTHEMATOSUS
     Dosage: (40 MG QD)
  4. PARACETAMOL [Concomitant]

REACTIONS (2)
  - HEPATIC STEATOSIS [None]
  - HEPATOTOXICITY [None]
